FAERS Safety Report 11642900 (Version 1)
Quarter: 2015Q4

REPORT INFORMATION
  Report Type: Spontaneous
  Country: US (occurrence: US)
  Receive Date: 20151020
  Receipt Date: 20151020
  Transmission Date: 20160304
  Serious: No
  Sender: FDA-Public Use
  Company Number: US-TEVA-513213USA

PATIENT
  Age: 16 Year
  Sex: Female

DRUGS (1)
  1. ERRIN [Suspect]
     Active Substance: NORETHINDRONE
     Dates: start: 201408

REACTIONS (1)
  - Mouth ulceration [Not Recovered/Not Resolved]

NARRATIVE: CASE EVENT DATE: 2014
